FAERS Safety Report 13545200 (Version 1)
Quarter: 2017Q2

REPORT INFORMATION
  Report Type: Spontaneous
  Country: US (occurrence: US)
  Receive Date: 20170515
  Receipt Date: 20170515
  Transmission Date: 20170830
  Serious: No
  Sender: FDA-Public Use
  Company Number: US-009507513-1705USA004051

PATIENT
  Age: 55 Year
  Sex: Female
  Weight: 131.7 kg

DRUGS (1)
  1. NEXPLANON [Suspect]
     Active Substance: ETONOGESTREL
     Dosage: 1 DF, UNK
     Route: 059

REACTIONS (3)
  - Menopause [Unknown]
  - Device breakage [Unknown]
  - Complication of device removal [Unknown]
